FAERS Safety Report 5038536-5 (Version None)
Quarter: 2006Q2

REPORT INFORMATION
  Report Type: 
  Country: None (occurrence: None)
  Receive Date: 20060601
  Receipt Date: 20060121
  Transmission Date: 20061013
  Serious: No
  Sender: FDA-Public Use
  Company Number: 2006PV007481

PATIENT
  Age: 77 Year
  Sex: Male
  Weight: 122.4712 kg

DRUGS (8)
  1. BYETTA [Suspect]
     Indication: DIABETES MELLITUS NON-INSULIN-DEPENDENT
     Dosage: SEE IMAGE
     Route: 058
     Dates: start: 20051101, end: 20051231
  2. BYETTA [Suspect]
     Indication: DIABETES MELLITUS NON-INSULIN-DEPENDENT
     Dosage: SEE IMAGE
     Route: 058
     Dates: start: 20060101
  3. LANTUS [Concomitant]
  4. AMARYL [Concomitant]
  5. ALLOPURINOL [Concomitant]
  6. COLCHICINE [Concomitant]
  7. NEXIUM [Concomitant]
  8. FUROSEMIDE [Concomitant]

REACTIONS (3)
  - ARTHRALGIA [None]
  - INSOMNIA [None]
  - PAIN IN EXTREMITY [None]
